FAERS Safety Report 24857686 (Version 3)
Quarter: 2025Q3

REPORT INFORMATION
  Report Type: Report from Study
  Country: EU (occurrence: EU)
  Receive Date: 20250117
  Receipt Date: 20250809
  Transmission Date: 20251021
  Serious: Yes (Other)
  Sender: ALEXION PHARMACEUTICALS
  Company Number: EU-ASTRAZENECA-202501GLO011089DE

PATIENT
  Age: 65 Year
  Sex: Female
  Weight: 60 kg

DRUGS (32)
  1. DURVALUMAB [Suspect]
     Active Substance: DURVALUMAB
     Indication: Hepatobiliary cancer
     Dates: start: 20241014, end: 20241014
  2. DURVALUMAB [Suspect]
     Active Substance: DURVALUMAB
     Dates: start: 20241104, end: 20241104
  3. DURVALUMAB [Suspect]
     Active Substance: DURVALUMAB
     Dates: start: 20241125, end: 20241125
  4. DURVALUMAB [Suspect]
     Active Substance: DURVALUMAB
     Dates: start: 20241216, end: 20241216
  5. DURVALUMAB [Suspect]
     Active Substance: DURVALUMAB
     Dates: start: 20250113, end: 20250113
  6. DURVALUMAB [Suspect]
     Active Substance: DURVALUMAB
     Dates: start: 20250203, end: 20250203
  7. DURVALUMAB [Suspect]
     Active Substance: DURVALUMAB
     Dates: start: 20250224, end: 20250224
  8. DURVALUMAB [Suspect]
     Active Substance: DURVALUMAB
     Dates: start: 20250324, end: 20250324
  9. DURVALUMAB [Suspect]
     Active Substance: DURVALUMAB
     Dates: start: 20250422, end: 20250422
  10. GEMCITABINE [Suspect]
     Active Substance: GEMCITABINE
     Indication: Hepatobiliary cancer
     Dates: start: 20241014, end: 20241014
  11. GEMCITABINE [Suspect]
     Active Substance: GEMCITABINE
     Dates: start: 20241021, end: 20241021
  12. GEMCITABINE [Suspect]
     Active Substance: GEMCITABINE
     Dates: start: 20241104, end: 20241104
  13. GEMCITABINE [Suspect]
     Active Substance: GEMCITABINE
     Dates: start: 20241111, end: 20241111
  14. GEMCITABINE [Suspect]
     Active Substance: GEMCITABINE
     Dates: start: 20241125, end: 20241125
  15. GEMCITABINE [Suspect]
     Active Substance: GEMCITABINE
     Dates: start: 20241202, end: 20241202
  16. GEMCITABINE [Suspect]
     Active Substance: GEMCITABINE
     Dates: start: 20241216, end: 20241216
  17. GEMCITABINE [Suspect]
     Active Substance: GEMCITABINE
     Dates: start: 20250113, end: 20250113
  18. GEMCITABINE [Suspect]
     Active Substance: GEMCITABINE
     Dates: start: 20250120, end: 20250120
  19. GEMCITABINE [Suspect]
     Active Substance: GEMCITABINE
     Dates: start: 20250203, end: 20250203
  20. GEMCITABINE [Suspect]
     Active Substance: GEMCITABINE
     Dates: start: 20250210, end: 20250210
  21. GEMCITABINE [Suspect]
     Active Substance: GEMCITABINE
     Dates: start: 20250224, end: 20250224
  22. GEMCITABINE [Suspect]
     Active Substance: GEMCITABINE
     Dates: start: 20250303, end: 20250303
  23. CISPLATIN [Suspect]
     Active Substance: CISPLATIN
     Indication: Hepatobiliary cancer
     Dates: start: 20241014, end: 20241014
  24. CISPLATIN [Suspect]
     Active Substance: CISPLATIN
     Dates: start: 20241021, end: 20241021
  25. CISPLATIN [Suspect]
     Active Substance: CISPLATIN
     Dates: start: 20241104, end: 20241104
  26. CISPLATIN [Suspect]
     Active Substance: CISPLATIN
     Dates: start: 20241111, end: 20241111
  27. CISPLATIN [Suspect]
     Active Substance: CISPLATIN
     Dates: start: 20241125, end: 20241125
  28. CISPLATIN [Suspect]
     Active Substance: CISPLATIN
     Dates: start: 20241202, end: 20241202
  29. CISPLATIN [Suspect]
     Active Substance: CISPLATIN
     Dates: start: 20250113, end: 20250113
  30. CISPLATIN [Suspect]
     Active Substance: CISPLATIN
     Dates: start: 20250203, end: 20250203
  31. CISPLATIN [Suspect]
     Active Substance: CISPLATIN
     Dates: start: 20250224, end: 20250224
  32. CISPLATIN [Suspect]
     Active Substance: CISPLATIN
     Dates: start: 20250303, end: 20250303

REACTIONS (2)
  - Diarrhoea [Recovered/Resolved]
  - Leukopenia [Recovered/Resolved]

NARRATIVE: CASE EVENT DATE: 20241217
